FAERS Safety Report 8262094-5 (Version None)
Quarter: 2012Q2

REPORT INFORMATION
  Report Type: 
  Country: None (occurrence: None)
  Receive Date: 20120405
  Receipt Date: 20120326
  Transmission Date: 20120825
  Serious: Yes (Hospitalization)
  Sender: FDA-Public Use
  Company Number: PHHY2012IT022794

PATIENT
  Sex: Female

DRUGS (1)
  1. VALPRESSION [Suspect]
     Indication: HYPERTENSION
     Dosage: 80 MG, PER DAY
     Route: 048
     Dates: start: 20111215, end: 20120215

REACTIONS (8)
  - AORTIC ARTERIOSCLEROSIS [None]
  - BODY FAT DISORDER [None]
  - ARRHYTHMIA [None]
  - LUNG NEOPLASM [None]
  - BLOOD PRESSURE SYSTOLIC INCREASED [None]
  - PALPITATIONS [None]
  - CARDIOMEGALY [None]
  - CHEST PAIN [None]
